FAERS Safety Report 10242865 (Version 1)
Quarter: 2014Q2

REPORT INFORMATION
  Report Type: Spontaneous
  Country: US (occurrence: US)
  Receive Date: 20140618
  Receipt Date: 20140618
  Transmission Date: 20141212
  Serious: Yes (Other)
  Sender: FDA-Public Use
  Company Number: US-AMGEN INC.-USASP2014045240

PATIENT
  Age: 58 Year
  Sex: Female

DRUGS (1)
  1. ENBREL [Suspect]
     Indication: ANKYLOSING SPONDYLITIS
     Dosage: 50 MG, Q2WK
     Route: 065
     Dates: start: 20120813

REACTIONS (8)
  - Eyelid disorder [Recovered/Resolved]
  - Hand fracture [Unknown]
  - Diarrhoea [Not Recovered/Not Resolved]
  - Finger deformity [Not Recovered/Not Resolved]
  - Mass [Not Recovered/Not Resolved]
  - Limb injury [Recovered/Resolved]
  - Crying [Not Recovered/Not Resolved]
  - Eye disorder [Not Recovered/Not Resolved]
